FAERS Safety Report 9729766 (Version 1)
Quarter: 2013Q4

REPORT INFORMATION
  Report Type: Spontaneous
  Country: US (occurrence: US)
  Receive Date: 20131204
  Receipt Date: 20131204
  Transmission Date: 20140711
  Serious: No
  Sender: FDA-Public Use
  Company Number: US-GILEAD-2009-0022281

PATIENT
  Sex: Female
  Weight: 106.59 kg

DRUGS (15)
  1. LETAIRIS [Suspect]
     Indication: PULMONARY ARTERIAL HYPERTENSION
     Route: 048
     Dates: start: 20050104
  2. REVATIO [Concomitant]
  3. CARDIZEM [Concomitant]
  4. LASIX [Concomitant]
  5. ASPIRIN [Concomitant]
  6. VYTORIN [Concomitant]
  7. ADVAIR [Concomitant]
  8. COMBIVENT [Concomitant]
  9. FLEXERIL [Concomitant]
  10. GABAPENTIN [Concomitant]
  11. LORAZEPAM [Concomitant]
  12. PROVIGIL [Concomitant]
  13. OXYGEN [Concomitant]
  14. FISH OIL [Concomitant]
  15. POTASSIUM CHLORIDE [Concomitant]

REACTIONS (1)
  - Sleep disorder [Unknown]
